FAERS Safety Report 24442060 (Version 4)
Quarter: 2025Q2

REPORT INFORMATION
  Report Type: Spontaneous
  Country: US (occurrence: US)
  Receive Date: 20241016
  Receipt Date: 20250421
  Transmission Date: 20250716
  Serious: No
  Sender: ROCHE
  Company Number: US-ROCHE-3523041

PATIENT
  Age: 33 Year
  Sex: Male

DRUGS (4)
  1. HEMLIBRA [Suspect]
     Active Substance: EMICIZUMAB-KXWH
     Indication: Factor VIII deficiency
     Dosage: STRENGTH: 60 MG/0.4 ML, 105MG/0.7 ML
     Route: 058
     Dates: start: 202402
  2. HEMLIBRA [Suspect]
     Active Substance: EMICIZUMAB-KXWH
     Dosage: STRENGTH: 60 MG/0.4 ML, 105MG/0.7 ML
     Route: 058
     Dates: start: 202401
  3. HEMLIBRA [Suspect]
     Active Substance: EMICIZUMAB-KXWH
     Dosage: STRENGTH: 300MG/02ML
     Route: 058
     Dates: start: 202402
  4. HEMLIBRA [Suspect]
     Active Substance: EMICIZUMAB-KXWH
     Dosage: STRENGTH: 300MG/02ML
     Route: 058
     Dates: start: 202402

REACTIONS (5)
  - Ligament sprain [Unknown]
  - Haemorrhage [Unknown]
  - Ligament sprain [Unknown]
  - Arthralgia [Unknown]
  - Haemorrhage [Recovered/Resolved]

NARRATIVE: CASE EVENT DATE: 20240224
